FAERS Safety Report 19809386 (Version 1)
Quarter: 2021Q3

REPORT INFORMATION
  Report Type: Spontaneous
  Country: BE (occurrence: BE)
  Receive Date: 20210909
  Receipt Date: 20210909
  Transmission Date: 20211014
  Serious: Yes (Other)
  Sender: FDA-Public Use
  Company Number: BE-SUN PHARMACEUTICAL INDUSTRIES LTD-2021R1-310481

PATIENT
  Age: 81 Year
  Sex: Male

DRUGS (2)
  1. ADRENALINE [Suspect]
     Active Substance: EPINEPHRINE
     Indication: PULSELESS ELECTRICAL ACTIVITY
     Dosage: 3 MILLIGRAM, UNK
     Route: 065
  2. NORADRENALINE [Suspect]
     Active Substance: NOREPINEPHRINE
     Indication: HYPOTENSION
     Dosage: 0.6 MICROGRAM/KILOGRAM ,PER MINUTE
     Route: 065

REACTIONS (2)
  - Left ventricle outflow tract obstruction [Unknown]
  - Electrocardiogram ST segment elevation [Unknown]
